FAERS Safety Report 6765653-1 (Version None)
Quarter: 2010Q2

REPORT INFORMATION
  Report Type: 
  Country: None (occurrence: None)
  Receive Date: 20100611
  Receipt Date: 20100607
  Transmission Date: 20101027
  Serious: Yes (Death, Hospitalization)
  Sender: FDA-Public Use
  Company Number: JP-WYE-H14875410

PATIENT
  Sex: Male
  Weight: 47 kg

DRUGS (14)
  1. ZOSYN [Suspect]
     Indication: PNEUMONIA
     Route: 041
     Dates: start: 20090722, end: 20090727
  2. PONTAL [Concomitant]
     Indication: BRONCHITIS CHRONIC
     Route: 065
  3. ULCERLMIN [Concomitant]
     Indication: DRUG USE FOR UNKNOWN INDICATION
     Route: 065
  4. MUCODYNE [Concomitant]
     Indication: BRONCHITIS CHRONIC
     Route: 065
  5. LEFTOSE [Concomitant]
     Indication: BRONCHITIS CHRONIC
     Route: 065
  6. CLARITH [Concomitant]
     Indication: BRONCHITIS CHRONIC
     Route: 065
  7. BIOFERMIN R [Concomitant]
     Indication: DIARRHOEA
     Route: 065
  8. PHELLOBERIN A [Concomitant]
     Indication: DIARRHOEA
     Route: 065
  9. NOVAMIN [Concomitant]
     Indication: DRUG USE FOR UNKNOWN INDICATION
     Route: 065
  10. NITROGLYCERIN [Concomitant]
     Indication: DRUG USE FOR UNKNOWN INDICATION
     Route: 062
  11. FENTANYL [Concomitant]
     Indication: CANCER PAIN
     Dosage: UNKNOWN
     Route: 062
  12. NORVASC [Concomitant]
     Indication: HYPERTENSION
     Route: 065
  13. LAC B [Concomitant]
     Indication: DIARRHOEA
     Route: 065
  14. HOKUNALIN [Concomitant]
     Indication: BRONCHITIS CHRONIC
     Route: 062

REACTIONS (2)
  - DIARRHOEA [None]
  - VOMITING [None]
